FAERS Safety Report 10146379 (Version 2)
Quarter: 2014Q2

REPORT INFORMATION
  Report Type: Spontaneous
  Country: US (occurrence: US)
  Receive Date: 20140501
  Receipt Date: 20140602
  Transmission Date: 20141212
  Serious: Yes (Hospitalization, Other)
  Sender: FDA-Public Use
  Company Number: US-GILEAD-2014-0101275

PATIENT
  Sex: Female

DRUGS (8)
  1. LETAIRIS [Suspect]
     Indication: PULMONARY HYPERTENSION
     Dosage: 10 MG, QD
     Route: 065
     Dates: start: 20130910
  2. LETAIRIS [Suspect]
     Indication: PULMONARY FIBROSIS
  3. PREDNISONE [Concomitant]
  4. OMEPRAZOLE [Concomitant]
  5. ETODOLAC [Concomitant]
  6. HYDROXYCHLOROQUINE [Concomitant]
  7. BENICAR [Concomitant]
  8. FUROSEMIDE [Concomitant]

REACTIONS (3)
  - Unevaluable event [Unknown]
  - Dyspnoea [Recovering/Resolving]
  - Dyspnoea [Unknown]
